FAERS Safety Report 17279056 (Version 2)
Quarter: 2020Q1

REPORT INFORMATION
  Report Type: Report from Study
  Country: None (occurrence: CO)
  Receive Date: 20200116
  Receipt Date: 20200318
  Transmission Date: 20200409
  Serious: Yes (Other)
  Sender: FDA-Public Use
  Company Number: CO-ABBVIE-20K-036-3231423-00

PATIENT
  Age: 40 Year
  Sex: Female
  Weight: 64 kg

DRUGS (3)
  1. HUMIRA [Suspect]
     Active Substance: ADALIMUMAB
     Indication: PSORIASIS
     Route: 058
     Dates: end: 20200210
  2. ENOXAPARIN [Concomitant]
     Active Substance: ENOXAPARIN
     Indication: THROMBOSIS
     Route: 058
  3. HUMIRA [Suspect]
     Active Substance: ADALIMUMAB
     Indication: PSORIASIS
     Route: 058
     Dates: start: 20110413

REACTIONS (8)
  - Pain in extremity [Recovering/Resolving]
  - International normalised ratio decreased [Unknown]
  - Disorientation [Recovering/Resolving]
  - Thrombosis [Recovering/Resolving]
  - Prosopagnosia [Unknown]
  - Chest pain [Unknown]
  - Haemorrhage [Recovering/Resolving]
  - Tonsillitis [Unknown]

NARRATIVE: CASE EVENT DATE: 2018
